FAERS Safety Report 10706300 (Version 1)
Quarter: 2015Q1

REPORT INFORMATION
  Report Type: Spontaneous
  Country: US (occurrence: None)
  Receive Date: 20150109
  Receipt Date: 20150109
  Transmission Date: 20150721
  Serious: Yes (Other)
  Sender: FDA-Public Use
  Company Number: None

PATIENT
  Age: 64 Year
  Sex: Male

DRUGS (3)
  1. HUMIRA [Suspect]
     Active Substance: ADALIMUMAB
     Indication: PSORIASIS
     Dosage: 40MG?EVERY OTHER?SUBQ
     Route: 058
     Dates: start: 20140408, end: 20150108
  2. SPIRIVA [Concomitant]
     Active Substance: TIOTROPIUM BROMIDE MONOHYDRATE
  3. SIMCOR [Concomitant]
     Active Substance: NIACIN\SIMVASTATIN

REACTIONS (2)
  - Rash generalised [None]
  - Pruritus [None]

NARRATIVE: CASE EVENT DATE: 20150102
